FAERS Safety Report 23452715 (Version 1)
Quarter: 2024Q1

REPORT INFORMATION
  Report Type: Spontaneous
  Country: US (occurrence: None)
  Receive Date: 20240129
  Receipt Date: 20240129
  Transmission Date: 20240410
  Serious: Yes (Hospitalization)
  Sender: FDA-Public Use
  Company Number: None

PATIENT
  Age: 69 Year
  Sex: Female
  Weight: 57.92 kg

DRUGS (17)
  1. NEORAL [Suspect]
     Active Substance: CYCLOSPORINE
     Indication: Renal transplant
     Dosage: OTHER QUANTITY : 3 IN AM, 2 IN PRN;?FREQUENCY : TWICE A DAY;?
     Route: 048
     Dates: start: 20230316
  2. ATORVASTATIN [Concomitant]
  3. CLOPIDOGREL [Concomitant]
  4. CYANOCOBALAMIN [Concomitant]
  5. DORZOLAMIDE-TIMOLOL OPHTH SOLN [Concomitant]
  6. FAMOTIDINE [Concomitant]
  7. LEVOTHYROXINE [Concomitant]
  8. LINZESS 472MCG CAPSULES [Concomitant]
  9. MIRALAX 3350 NF POWDER 510GM [Concomitant]
  10. PREDNISONE [Concomitant]
  11. SYSTANE GEL DROPS [Concomitant]
  12. VITAMIN B-1 100MG TABLETS [Concomitant]
  13. VITAMIN B-12 100MCG TABLETS [Concomitant]
  14. VITAMIN B-6 100MG TABLETS 300^S [Concomitant]
  15. VITAMIN D 1,000IU SOFTGELS [Concomitant]
  16. ZIOPTAN 0.0015% DROP 30 SNGL/U VIAL [Concomitant]
  17. CYCLOSPORINE 25MG (MOD( CAPS [Concomitant]

REACTIONS (1)
  - Dehydration [None]

NARRATIVE: CASE EVENT DATE: 20240103
